FAERS Safety Report 10068176 (Version 1)
Quarter: 2014Q2

REPORT INFORMATION
  Report Type: Spontaneous
  Country: US (occurrence: US)
  Receive Date: 20140409
  Receipt Date: 20140409
  Transmission Date: 20141212
  Serious: No
  Sender: FDA-Public Use
  Company Number: US-PFIZER INC-2014097071

PATIENT
  Age: 83 Year
  Sex: Male
  Weight: 79.37 kg

DRUGS (2)
  1. NEURONTIN [Suspect]
     Indication: NERVE COMPRESSION
     Dosage: 300 MG, DAILY
     Dates: start: 201403
  2. FLOMAX [Concomitant]
     Dosage: UNK, DAILY

REACTIONS (1)
  - Insomnia [Unknown]
